FAERS Safety Report 6447657-1 (Version None)
Quarter: 2009Q4

REPORT INFORMATION
  Report Type: 
  Country: None (occurrence: None)
  Receive Date: 20091120
  Receipt Date: 20091116
  Transmission Date: 20100525
  Serious: Yes (Congenital Anomaly, Other)
  Sender: FDA-Public Use
  Company Number: GB-RANBAXY-2009RR-29293

PATIENT

DRUGS (7)
  1. FLUOXETINE [Suspect]
     Dosage: 20 MG, UNK
     Route: 064
  2. AMOXICILLIN [Concomitant]
     Dosage: 250 MG, UNK
     Route: 064
  3. BECOTIDE [Concomitant]
     Dosage: 200 UG, BID
     Route: 064
  4. AMOXICILLIN AND CLAVULANATE POTASSIUM [Concomitant]
     Dosage: 325 MG, UNK
     Route: 064
  5. GAVISCON [Concomitant]
     Route: 064
  6. LACTULOSE [Concomitant]
     Dosage: 13 ML, BID
     Route: 064
  7. ALBUTEROL [Concomitant]
     Dosage: 2 DF, QID
     Route: 064

REACTIONS (1)
  - HYPOSPADIAS [None]
